FAERS Safety Report 7082837-6 (Version None)
Quarter: 2010Q4

REPORT INFORMATION
  Report Type: 
  Country: None (occurrence: None)
  Receive Date: 20101104
  Receipt Date: 20101027
  Transmission Date: 20110411
  Serious: Yes (Hospitalization)
  Sender: FDA-Public Use
  Company Number: US-SANOFI-AVENTIS-2010SA066096

PATIENT
  Age: 86 Year
  Sex: Female

DRUGS (11)
  1. MULTAQ [Suspect]
     Indication: ATRIAL FLUTTER
     Route: 048
     Dates: start: 20101020, end: 20101022
  2. ASPIRIN [Concomitant]
  3. ANTACID TAB [Concomitant]
  4. ATIVAN [Concomitant]
  5. CARAFATE [Concomitant]
  6. CENTRUM SILVER [Concomitant]
  7. FENOFIBRATE [Concomitant]
  8. FERROUS SULFATE [Concomitant]
  9. METOPROLOL [Concomitant]
  10. GLYCERYL TRINITRATE [Concomitant]
  11. SIMVASTATIN [Concomitant]

REACTIONS (2)
  - BLOOD CREATININE INCREASED [None]
  - RENAL FAILURE [None]
